FAERS Safety Report 9820683 (Version 3)
Quarter: 2014Q1

REPORT INFORMATION
  Report Type: Spontaneous
  Country: JP (occurrence: JP)
  Receive Date: 20140116
  Receipt Date: 20140130
  Transmission Date: 20141002
  Serious: Yes (Other)
  Sender: FDA-Public Use
  Company Number: JP-OTSUKA-JP-2014-10154

PATIENT
  Age: 72 Year
  Sex: Female

DRUGS (8)
  1. SAMSCA [Suspect]
     Indication: OEDEMA DUE TO HEPATIC DISEASE
     Dosage: 3.75 MG MILLIGRAM(S), DAILY DOSE
     Route: 048
     Dates: start: 20140109
  2. AMARYL [Concomitant]
     Dosage: 1 MG MILLIGRAM(S), DAILY DOSE
     Route: 048
     Dates: start: 20140101
  3. EQUA [Concomitant]
     Dosage: 50 MG MILLIGRAM(S), DAILY DOSE
     Route: 048
     Dates: start: 20140101
  4. ALDACTONE A [Concomitant]
     Dosage: 25 MG MILLIGRAM(S), DAILY DOSE
     Route: 048
     Dates: start: 20140109
  5. ALDACTONE A [Concomitant]
     Dosage: 50 MG MILLIGRAM(S), DAILY DOSE
     Route: 048
  6. LASIX [Concomitant]
     Dosage: 60 MG MILLIGRAM(S), DAILY DOSE
     Route: 048
     Dates: end: 20140115
  7. LASIX [Concomitant]
     Dosage: 20 MG MILLIGRAM(S), DAILY DOSE
     Route: 048
     Dates: start: 20140116
  8. ALBUMIN [Concomitant]
     Dosage: 100 ML MILLILITRE(S), DAILY DOSE
     Route: 041

REACTIONS (1)
  - Blood sodium decreased [Recovered/Resolved]
